FAERS Safety Report 7464513-0 (Version None)
Quarter: 2011Q2

REPORT INFORMATION
  Report Type: 
  Country: None (occurrence: None)
  Receive Date: 20110509
  Receipt Date: 20110503
  Transmission Date: 20111010
  Serious: Yes (Death, Life-Threatening)
  Sender: FDA-Public Use
  Company Number: US-RANBAXY-2011US-44116

PATIENT
  Age: 33 Year
  Sex: Female

DRUGS (1)
  1. TOPIRAMATE [Suspect]
     Indication: POST-TRAUMATIC EPILEPSY
     Dosage: UNK, UNK
     Route: 065

REACTIONS (8)
  - LEUKOCYTOSIS [None]
  - MULTI-ORGAN FAILURE [None]
  - GRAND MAL CONVULSION [None]
  - RHABDOMYOLYSIS [None]
  - SHOCK [None]
  - BAND NEUTROPHIL COUNT INCREASED [None]
  - METABOLIC ACIDOSIS [None]
  - OLIGURIA [None]
